FAERS Safety Report 4913057-6 (Version None)
Quarter: 2006Q1

REPORT INFORMATION
  Report Type: 
  Country: None (occurrence: None)
  Receive Date: 20060210
  Receipt Date: 20060127
  Transmission Date: 20060701
  Serious: Yes (Death, Hospitalization)
  Sender: FDA-Public Use
  Company Number: L05-USA-03935-42

PATIENT
  Age: 25 Year
  Sex: Female

DRUGS (5)
  1. LEXAPRO [Suspect]
  2. AMITRIPTYLINE HCL [Suspect]
  3. XANAX [Suspect]
  4. AMPHETAMINE (DEXTROAMPHETAMINE) [Suspect]
  5. MEPERIDINE HCL [Suspect]

REACTIONS (5)
  - BRAIN DEATH [None]
  - CARDIAC ARREST [None]
  - ELECTROCARDIOGRAM QRS COMPLEX PROLONGED [None]
  - LOSS OF CONSCIOUSNESS [None]
  - RESPIRATORY ARREST [None]
